FAERS Safety Report 25605336 (Version 1)
Quarter: 2025Q3

REPORT INFORMATION
  Report Type: Spontaneous
  Country: EU (occurrence: EU)
  Receive Date: 20250725
  Receipt Date: 20250725
  Transmission Date: 20251020
  Serious: Yes (Other)
  Sender: MYLAN
  Company Number: None

PATIENT
  Sex: Male

DRUGS (12)
  1. TRAMADOL [Suspect]
     Active Substance: TRAMADOL
     Indication: Product used for unknown indication
  2. TRAMADOL [Suspect]
     Active Substance: TRAMADOL
     Route: 065
  3. TRAMADOL [Suspect]
     Active Substance: TRAMADOL
     Route: 065
  4. TRAMADOL [Suspect]
     Active Substance: TRAMADOL
  5. BROMAZEPAM [Suspect]
     Active Substance: BROMAZEPAM
     Indication: Product used for unknown indication
  6. BROMAZEPAM [Suspect]
     Active Substance: BROMAZEPAM
     Route: 065
  7. BROMAZEPAM [Suspect]
     Active Substance: BROMAZEPAM
     Route: 065
  8. BROMAZEPAM [Suspect]
     Active Substance: BROMAZEPAM
  9. HALCION [Suspect]
     Active Substance: TRIAZOLAM
     Indication: Product used for unknown indication
  10. HALCION [Suspect]
     Active Substance: TRIAZOLAM
     Route: 065
  11. HALCION [Suspect]
     Active Substance: TRIAZOLAM
     Route: 065
  12. HALCION [Suspect]
     Active Substance: TRIAZOLAM

REACTIONS (1)
  - Prescription form tampering [Unknown]

NARRATIVE: CASE EVENT DATE: 20250630
